FAERS Safety Report 10344870 (Version 1)
Quarter: 2014Q3

REPORT INFORMATION
  Report Type: Spontaneous
  Country: US (occurrence: US)
  Receive Date: 20140728
  Receipt Date: 20140728
  Transmission Date: 20150326
  Serious: No
  Sender: FDA-Public Use
  Company Number: US-PFIZER INC-2014205303

PATIENT
  Age: 58 Year
  Sex: Female
  Weight: 62.6 kg

DRUGS (4)
  1. ESTRING [Suspect]
     Active Substance: ESTRADIOL
     Indication: CERVIX DISORDER
     Dosage: UNK
     Route: 067
     Dates: start: 2006
  2. ESTRING [Suspect]
     Active Substance: ESTRADIOL
     Indication: BLADDER DISCOMFORT
  3. ELAVIL [Concomitant]
     Active Substance: AMITRIPTYLINE HYDROCHLORIDE
     Indication: MIGRAINE
     Dosage: UNK
  4. ELAVIL [Concomitant]
     Active Substance: AMITRIPTYLINE HYDROCHLORIDE
     Indication: INSOMNIA

REACTIONS (3)
  - Pollakiuria [Unknown]
  - Drug ineffective [Unknown]
  - Affect lability [Unknown]

NARRATIVE: CASE EVENT DATE: 2014
